FAERS Safety Report 12193986 (Version 1)
Quarter: 2016Q1

REPORT INFORMATION
  Report Type: Spontaneous
  Country: US (occurrence: US)
  Receive Date: 20160321
  Receipt Date: 20160321
  Transmission Date: 20160526
  Serious: Yes (Hospitalization)
  Sender: FDA-Public Use
  Company Number: US-BEH-2016060106

PATIENT
  Sex: Female
  Weight: 85 kg

DRUGS (17)
  1. LANTUS [Concomitant]
     Active Substance: INSULIN GLARGINE
  2. EPIPEN [Concomitant]
     Active Substance: EPINEPHRINE
  3. SINGULAIR [Concomitant]
     Active Substance: MONTELUKAST SODIUM
  4. HIZENTRA [Suspect]
     Active Substance: HUMAN IMMUNOGLOBULIN G
     Indication: IMMUNODEFICIENCY COMMON VARIABLE
     Dosage: ON HIZENTRA FOR 3 YEARS
     Route: 058
  5. DIPHENHYDRAMINE. [Concomitant]
     Active Substance: DIPHENHYDRAMINE
  6. SOLOSTAR [Concomitant]
     Active Substance: DEVICE
  7. THEOPHYLLINE [Concomitant]
     Active Substance: THEOPHYLLINE ANHYDROUS
  8. LEVAQUIN [Concomitant]
     Active Substance: LEVOFLOXACIN
  9. PROVENTIL [Concomitant]
     Active Substance: ALBUTEROL
  10. ACETAMINOPHEN. [Concomitant]
     Active Substance: ACETAMINOPHEN
  11. HUMALOG [Concomitant]
     Active Substance: INSULIN LISPRO
  12. PREDNISONE. [Concomitant]
     Active Substance: PREDNISONE
  13. KLOR-CON [Concomitant]
     Active Substance: POTASSIUM CHLORIDE
  14. CLARITIN [Concomitant]
     Active Substance: LORATADINE
  15. L-M-X [Concomitant]
  16. MICARDIS [Concomitant]
     Active Substance: TELMISARTAN
  17. LEVOTHYROXINE. [Concomitant]
     Active Substance: LEVOTHYROXINE

REACTIONS (1)
  - Pneumonia [Unknown]
